FAERS Safety Report 9277017 (Version 1)
Quarter: 2013Q2

REPORT INFORMATION
  Report Type: Spontaneous
  Country: GB (occurrence: None)
  Receive Date: 20130501
  Receipt Date: 20130501
  Transmission Date: 20140414
  Serious: Yes (Hospitalization, Other)
  Sender: FDA-Public Use
  Company Number: CL-485-2013

PATIENT
  Age: 51 Year
  Sex: Female
  Weight: 76 kg

DRUGS (10)
  1. CIPROFLOXACIN [Suspect]
     Route: 042
     Dates: start: 20130328, end: 20130412
  2. MEROPENEM [Suspect]
     Route: 042
     Dates: start: 20130328, end: 20130412
  3. CARBOCISTEINE [Concomitant]
  4. FLUCONAZOLE [Concomitant]
  5. FLUOXETINE [Concomitant]
  6. GANFORT (BIMATOPROST, TIMOLOL) [Concomitant]
  7. ENOXAPAIN [Concomitant]
  8. MOMETASONE [Concomitant]
  9. OMEPRAZOLE [Concomitant]
  10. PREDNISOLONE [Concomitant]

REACTIONS (8)
  - Back pain [None]
  - Chest pain [None]
  - Drug interaction [None]
  - Dyspnoea [None]
  - Neck pain [None]
  - Pain in extremity [None]
  - Product deposit [None]
  - Wheezing [None]
